FAERS Safety Report 5659344-8 (Version None)
Quarter: 2008Q1

REPORT INFORMATION
  Report Type: 
  Country: None (occurrence: None)
  Receive Date: 20080306
  Receipt Date: 20080306
  Transmission Date: 20080703
  Serious: Yes (Hospitalization)
  Sender: FDA-Public Use
  Company Number: None

PATIENT
  Sex: Male
  Weight: 81.65 kg

DRUGS (9)
  1. SUNITINIB [Suspect]
     Indication: PROSTATE CANCER
     Dosage: 37.5MG/DAY/ORAL/PILL
     Route: 048
  2. ACCUPRIL [Concomitant]
  3. TRICOR [Concomitant]
  4. NORVASC [Concomitant]
  5. ASPIRIN [Concomitant]
  6. LIPITOR [Concomitant]
  7. HANDIHALER SPIRIVA [Concomitant]
  8. ALBUTEROL [Concomitant]
  9. PROLOSEC [Concomitant]

REACTIONS (4)
  - DRUG SPECIFIC ANTIBODY PRESENT [None]
  - HAEMOGLOBIN DECREASED [None]
  - HEPARIN-INDUCED THROMBOCYTOPENIA [None]
  - MOUTH HAEMORRHAGE [None]
